FAERS Safety Report 25749195 (Version 2)
Quarter: 2025Q4

REPORT INFORMATION
  Report Type: Spontaneous
  Country: JP (occurrence: JP)
  Receive Date: 20250902
  Receipt Date: 20251017
  Transmission Date: 20260117
  Serious: Yes (Hospitalization, Other)
  Sender: ROCHE
  Company Number: JP-CHUGAI-2025015818

PATIENT
  Age: 4 Year
  Sex: Male
  Weight: 14.8 kg

DRUGS (4)
  1. HEMLIBRA [Suspect]
     Active Substance: EMICIZUMAB-KXWH
     Indication: Factor VIII deficiency
     Dosage: 6 MILLIGRAM, ONCE/4WEEKS
     Route: 058
     Dates: start: 202110
  2. HEMLIBRA [Suspect]
     Active Substance: EMICIZUMAB-KXWH
     Dosage: 45 MILLIGRAM, ONCE/2WEEKS
     Route: 058
     Dates: end: 20250410
  3. HEMLIBRA [Suspect]
     Active Substance: EMICIZUMAB-KXWH
     Route: 058
     Dates: start: 20250605
  4. ADVATE [Suspect]
     Active Substance: ANTIHEMOPHILIC FACTOR, HUMAN RECOMBINANT
     Indication: Product used for unknown indication
     Route: 065

REACTIONS (4)
  - Activated partial thromboplastin time prolonged [Recovered/Resolved]
  - Oesophageal stenosis [Not Recovered/Not Resolved]
  - Oesophageal ulcer [Recovering/Resolving]
  - Gastrointestinal haemorrhage [Recovered/Resolved]

NARRATIVE: CASE EVENT DATE: 20230701
